FAERS Safety Report 15792246 (Version 3)
Quarter: 2019Q1

REPORT INFORMATION
  Report Type: Spontaneous
  Country: TR (occurrence: TR)
  Receive Date: 20190107
  Receipt Date: 20190305
  Transmission Date: 20190417
  Serious: Yes (Hospitalization)
  Sender: FDA-Public Use
  Company Number: TR-CONCORDIA PHARMACEUTICALS INC.-GSH201901-000012

PATIENT
  Age: 64 Year
  Sex: Female
  Weight: 65 kg

DRUGS (3)
  1. GLIFOR [Concomitant]
     Active Substance: METFORMIN HYDROCHLORIDE
  2. CORTISOL [Concomitant]
     Active Substance: HYDROCORTISONE
  3. PLAQUENIL [Suspect]
     Active Substance: HYDROXYCHLOROQUINE SULFATE
     Indication: URTICARIA
     Dosage: DOSE: 2*1
     Route: 048
     Dates: start: 20181122, end: 20181221

REACTIONS (5)
  - Skin swelling [Recovered/Resolved]
  - Rash [Not Recovered/Not Resolved]
  - Drug hypersensitivity [Recovered/Resolved]
  - Skin lesion [Recovered/Resolved]
  - Pruritus [Not Recovered/Not Resolved]

NARRATIVE: CASE EVENT DATE: 20181217
